FAERS Safety Report 9314847 (Version 1)
Quarter: 2013Q2

REPORT INFORMATION
  Report Type: Report from Study
  Country: VE (occurrence: VE)
  Receive Date: 20130529
  Receipt Date: 20130529
  Transmission Date: 20140414
  Serious: Yes (Other)
  Sender: FDA-Public Use
  Company Number: VE-ABBOTT-13P-178-1094381-00

PATIENT
  Age: 77 Year
  Sex: Male
  Weight: 52 kg

DRUGS (2)
  1. HUMIRA [Suspect]
     Indication: RHEUMATOID ARTHRITIS
     Route: 058
     Dates: start: 20100211, end: 201210
  2. DIOVAN [Concomitant]
     Route: 048
     Dates: start: 2000

REACTIONS (1)
  - Pulmonary mass [Not Recovered/Not Resolved]
